FAERS Safety Report 4632709-9 (Version None)
Quarter: 2005Q1

REPORT INFORMATION
  Report Type: 
  Country: None (occurrence: None)
  Receive Date: 20050325
  Receipt Date: 20050109
  Transmission Date: 20050727
  Serious: No
  Sender: FDA-Public Use
  Company Number: USA041286477

PATIENT
  Age: 79 Year
  Sex: Female

DRUGS (1)
  1. FORTEO [Suspect]
     Indication: OSTEOPOROSIS
     Dates: start: 20041215

REACTIONS (4)
  - INJECTION SITE HAEMORRHAGE [None]
  - INSOMNIA [None]
  - MUSCLE SPASMS [None]
  - RESTLESS LEGS SYNDROME [None]
